FAERS Safety Report 15320534 (Version 2)
Quarter: 2020Q1

REPORT INFORMATION
  Report Type: Spontaneous
  Country: US (occurrence: US)
  Receive Date: 20180827
  Receipt Date: 20200109
  Transmission Date: 20200409
  Serious: No
  Sender: FDA-Public Use
  Company Number: US-PFIZER INC-2018342547

PATIENT
  Age: 3 Year
  Sex: Female

DRUGS (3)
  1. FLUOCINOLONE ACETONIDE. [Concomitant]
     Active Substance: FLUOCINOLONE ACETONIDE
     Indication: ECZEMA
     Dosage: UNK
  2. EUCRISA [Suspect]
     Active Substance: CRISABOROLE
     Indication: ECZEMA
     Dosage: UNK UNK, 2X/DAY
     Route: 061
  3. TARFIC [Concomitant]
     Indication: ECZEMA
     Dosage: UNK UNK, 1X/DAY
     Route: 061
     Dates: start: 2017

REACTIONS (1)
  - Therapeutic product effect decreased [Not Recovered/Not Resolved]
